FAERS Safety Report 7090740-0 (Version None)
Quarter: 2010Q4

REPORT INFORMATION
  Report Type: 
  Country: None (occurrence: None)
  Receive Date: 20101109
  Receipt Date: 20101027
  Transmission Date: 20110411
  Serious: Yes (Hospitalization)
  Sender: FDA-Public Use
  Company Number: PHFR2010GB04500

PATIENT
  Sex: Male

DRUGS (3)
  1. CLOZARIL [Suspect]
     Indication: SCHIZOPHRENIA
     Dosage: 300 MG, UNK
     Route: 048
     Dates: start: 20061102
  2. NULYTELY [Concomitant]
     Indication: CONSTIPATION
     Route: 048
  3. FLUOXIN [Concomitant]
     Indication: AFFECTIVE DISORDER
     Dosage: 20 MG, UNK

REACTIONS (6)
  - DRUG DOSE OMISSION [None]
  - FAECAL INCONTINENCE [None]
  - LOWER RESPIRATORY TRACT INFECTION [None]
  - PNEUMONIA [None]
  - TREATMENT NONCOMPLIANCE [None]
  - VOMITING [None]
